FAERS Safety Report 17875998 (Version 1)
Quarter: 2020Q2

REPORT INFORMATION
  Report Type: Spontaneous
  Country: DE (occurrence: DE)
  Receive Date: 20200609
  Receipt Date: 20200609
  Transmission Date: 20200714
  Serious: Yes (Hospitalization)
  Sender: FDA-Public Use
  Company Number: DE-TEVA-2020-DE-1245909

PATIENT
  Age: 63 Year
  Sex: Female

DRUGS (13)
  1. JANUMET [Concomitant]
     Active Substance: METFORMIN HYDROCHLORIDE\SITAGLIPTIN PHOSPHATE
     Dosage: 2 DOSAGE FORMS DAILY; 1000|50 MG, 1-0-1-0, TABLET
  2. FOLSAURE [Concomitant]
     Active Substance: FOLIC ACID
     Dosage: 5 MG / WEEK, 1XMI, TABLETS
  3. RAMIPRIL. [Concomitant]
     Active Substance: RAMIPRIL
     Dosage: 2.5 MILLIGRAM DAILY; 2.5 MG, 1-0-0-0, TABLET
  4. ATORVASTATIN [Concomitant]
     Active Substance: ATORVASTATIN
     Dosage: 40 MILLIGRAM DAILY; 40 MG, 0-0-1-0, TABLET
  5. METHOTREXAT [Suspect]
     Active Substance: METHOTREXATE
     Dosage: 10 MG / WEEK, 1XDI, TABLETS
  6. VIANI FORTE 50 MICROGRAM  / 500 MICROGRAM  DISCUS [Concomitant]
     Dosage: 2 DOSAGE FORMS DAILY; ?50 | 500 MICROGRAM, 1-0-1-0, MDI
  7. PANTOPRAZOL [Concomitant]
     Active Substance: PANTOPRAZOLE SODIUM
     Dosage: 80 MILLIGRAM DAILY; 40 MG, 1-0-1-0, TABLET
  8. ALLOPURINOL. [Concomitant]
     Active Substance: ALLOPURINOL
     Dosage: 300 MG, 0.5-0-0-0, TABLET
  9. CLOPIDOGREL [Suspect]
     Active Substance: CLOPIDOGREL BISULFATE
     Dosage: 75 MILLIGRAM DAILY; 75 MG, 1-0-0-0, TABLET
  10. INSULIN HUMAN [Concomitant]
     Active Substance: INSULIN HUMAN
     Dosage: ACCORDING TO BZ, SOLUTION
  11. SPIRIVA [Concomitant]
     Active Substance: TIOTROPIUM BROMIDE MONOHYDRATE
     Dosage: 18 MICROGRAM DAILY; ?18 MICROGRAMS, 1-0-0-0, INHALATION CAPSULES
  12. LANTUS [Concomitant]
     Active Substance: INSULIN GLARGINE
     Dosage: 24 IU (INTERNATIONAL UNIT) DAILY; ?24 IU, 0-1-0-0, SOLUTION
  13. ASS 100 [Suspect]
     Active Substance: ASPIRIN
     Dosage: 100 MILLIGRAM DAILY; 100 MG, 0-1-0-0, TABLET

REACTIONS (3)
  - Abdominal pain [Recovered/Resolved]
  - Nausea [Recovered/Resolved]
  - Vomiting [Recovered/Resolved]
